FAERS Safety Report 5113229-4 (Version None)
Quarter: 2006Q3

REPORT INFORMATION
  Report Type: 
  Country: None (occurrence: None)
  Receive Date: 20060922
  Receipt Date: 20040426
  Transmission Date: 20061208
  Serious: Yes (Disabling)
  Sender: FDA-Public Use
  Company Number: US-MERCK-0404USA02213

PATIENT
  Age: 72 Year
  Sex: Female

DRUGS (7)
  1. ZETIA [Suspect]
     Indication: BLOOD CHOLESTEROL INCREASED
     Route: 048
     Dates: start: 20040423, end: 20040426
  2. ZETIA [Suspect]
     Route: 048
     Dates: start: 20051101, end: 20060301
  3. ZETIA [Suspect]
     Route: 048
     Dates: start: 20060301, end: 20060901
  4. ZESTORETIC [Concomitant]
     Route: 065
  5. SYNTHROID [Concomitant]
     Route: 065
  6. XENICAL [Concomitant]
     Route: 065
  7. GLUCOPHAGE [Concomitant]
     Route: 065

REACTIONS (6)
  - ABDOMINAL PAIN UPPER [None]
  - CHILLS [None]
  - INAPPROPRIATE SCHEDULE OF DRUG ADMINISTRATION [None]
  - KERATOCONJUNCTIVITIS SICCA [None]
  - PAIN IN EXTREMITY [None]
  - TREMOR [None]
